FAERS Safety Report 9790661 (Version 4)
Quarter: 2014Q1

REPORT INFORMATION
  Report Type: Report from Study
  Country: US (occurrence: US)
  Receive Date: 20131231
  Receipt Date: 20140207
  Transmission Date: 20141002
  Serious: Yes (Death, Hospitalization)
  Sender: FDA-Public Use
  Company Number: US-ACTELION-A-US2013-92918

PATIENT
  Age: 79 Year
  Sex: Female

DRUGS (1)
  1. TRACLEER [Suspect]
     Indication: PULMONARY ARTERIAL HYPERTENSION
     Dosage: UNK
     Route: 048
     Dates: start: 20130110, end: 20140115

REACTIONS (4)
  - Cardiac failure congestive [Fatal]
  - Pulmonary arterial hypertension [Fatal]
  - Coronary artery occlusion [Recovering/Resolving]
  - Hypotension [Unknown]
